FAERS Safety Report 6274566-3 (Version None)
Quarter: 2009Q3

REPORT INFORMATION
  Report Type: 
  Country: None (occurrence: None)
  Receive Date: 20090716
  Receipt Date: 20090702
  Transmission Date: 20100115
  Serious: Yes (Hospitalization)
  Sender: FDA-Public Use
  Company Number: MPS1-1000234

PATIENT
  Age: 14 Year
  Sex: Female
  Weight: 19 kg

DRUGS (3)
  1. ALDURAZYME [Suspect]
     Indication: MUCOPOLYSACCHARIDOSIS
     Dosage: 8.7 MG
     Dates: start: 20031029
  2. BENADRYL [Concomitant]
  3. TYLENOL [Concomitant]

REACTIONS (7)
  - BODY TEMPERATURE INCREASED [None]
  - CONVULSION [None]
  - INFUSION RELATED REACTION [None]
  - PNEUMONIA [None]
  - RESPIRATORY DISORDER [None]
  - RESPIRATORY RATE INCREASED [None]
  - WEIGHT DECREASED [None]
